FAERS Safety Report 4424981-5 (Version None)
Quarter: 2004Q3

REPORT INFORMATION
  Report Type: 
  Country: None (occurrence: None)
  Receive Date: 20040809
  Receipt Date: 20040803
  Transmission Date: 20050211
  Serious: Yes (Other)
  Sender: FDA-Public Use
  Company Number: NSADSS2002012304

PATIENT
  Age: 10 Year
  Sex: Male
  Weight: 32.9765 kg

DRUGS (10)
  1. CISAPRIDE (CISAPRIDE) SUSPENSION [Suspect]
     Indication: IMPAIRED GASTRIC EMPTYING
     Dosage: 5.8 MG, 4 IN 1 DAY, ORAL
     Route: 048
     Dates: start: 20001124, end: 20020404
  2. ATIVAN [Concomitant]
  3. FLONASE (SPRAY) FLUTICASONE PROPIONATE [Concomitant]
  4. CARNITINE [Concomitant]
  5. VITAMIN C (ASCORBIC ACID) [Concomitant]
  6. MULTI-VITAMINS [Concomitant]
  7. TRACE ELEMENTS [Concomitant]
  8. ROCEPHIN [Concomitant]
  9. GLYCERIN (GLYCEROL) SUPPOSITORIES [Concomitant]
  10. HEPARIN [Concomitant]

REACTIONS (1)
  - BUNDLE BRANCH BLOCK RIGHT [None]
